FAERS Safety Report 4267271-6 (Version None)
Quarter: 2004Q1

REPORT INFORMATION
  Report Type: 
  Country: None (occurrence: None)
  Receive Date: 20040107
  Receipt Date: 20031225
  Transmission Date: 20041129
  Serious: No
  Sender: FDA-Public Use
  Company Number: 2003AP01452

PATIENT
  Age: 65 Year
  Sex: Male

DRUGS (11)
  1. IRESSA [Suspect]
     Indication: NON-SMALL CELL LUNG CANCER
     Dosage: 250 MG DAILY PO
     Route: 048
     Dates: start: 20030224, end: 20030324
  2. IRESSA [Suspect]
     Indication: SQUAMOUS CELL CARCINOMA
     Dosage: 250 MG DAILY PO
     Route: 048
     Dates: start: 20030224, end: 20030324
  3. GEMCITABINE [Concomitant]
  4. VINORELBINE [Concomitant]
  5. DIPYRIDAMOLE [Concomitant]
  6. CODEINE PHOSPHATE [Concomitant]
  7. DAONIL [Concomitant]
  8. BEZATOL - SLOW RELEASE [Concomitant]
  9. PANALDINE [Concomitant]
  10. BASEN [Concomitant]
  11. KINEDAK [Concomitant]

REACTIONS (1)
  - PNEUMONIA BACTERIAL [None]
